FAERS Safety Report 14035298 (Version 5)
Quarter: 2023Q4

REPORT INFORMATION
  Report Type: Spontaneous
  Country: US (occurrence: US)
  Receive Date: 20171003
  Receipt Date: 20231128
  Transmission Date: 20240110
  Serious: Yes (Other)
  Sender: FDA-Public Use
  Company Number: US-PFIZER INC-2017425983

PATIENT
  Age: 46 Year
  Sex: Male
  Weight: 115.67 kg

DRUGS (3)
  1. XELJANZ [Suspect]
     Active Substance: TOFACITINIB CITRATE
     Indication: Renal transplant
     Dosage: 5 MG, 2X/DAY
     Route: 048
     Dates: start: 20051010
  2. XELJANZ [Suspect]
     Active Substance: TOFACITINIB CITRATE
     Indication: Kidney transplant rejection
     Dosage: UNK
  3. TOZINAMERAN [Concomitant]
     Active Substance: TOZINAMERAN
     Indication: COVID-19 immunisation
     Dosage: DOSE NUMBER UNKNOWN, SINGLE

REACTIONS (4)
  - Thrombosis [Not Recovered/Not Resolved]
  - Skin cancer [Not Recovered/Not Resolved]
  - Dental operation [Not Recovered/Not Resolved]
  - Off label use [Unknown]

NARRATIVE: CASE EVENT DATE: 20051010
